FAERS Safety Report 9487207 (Version 1)
Quarter: 2013Q3

REPORT INFORMATION
  Report Type: Spontaneous
  Country: NL (occurrence: NL)
  Receive Date: 20130829
  Receipt Date: 20130829
  Transmission Date: 20140515
  Serious: Yes (Hospitalization)
  Sender: FDA-Public Use
  Company Number: NL-ACTAVIS-2013-15261

PATIENT
  Age: 67 Year
  Sex: Female

DRUGS (11)
  1. PANTOPRAZOLE (UNKNOWN) [Suspect]
     Indication: DYSPEPSIA
     Dosage: 40 MG, DOSAGE(S)=1 INTERVAL= 1 DAY(S)
     Route: 048
     Dates: start: 2001, end: 20130806
  2. CALCICHEW D3 [Concomitant]
     Indication: PRODUCT USED FOR UNKNOWN INDICATION
     Dosage: 1 DF, DOSAGE(S)=1 INTERVAL= 1 DAY(S)
     Route: 065
  3. METOPROLOL [Concomitant]
     Indication: PRODUCT USED FOR UNKNOWN INDICATION
     Dosage: 200 MG, DOSAGE(S)=1 INTERVAL= 1 DAY(S)
     Route: 065
  4. INEGY [Concomitant]
     Indication: PRODUCT USED FOR UNKNOWN INDICATION
     Dosage: 1 DF, DOSAGE(S)=1 INTERVAL= 1 DAY(S)
     Route: 065
  5. DOXAZOSIN [Concomitant]
     Indication: PRODUCT USED FOR UNKNOWN INDICATION
     Dosage: 8 MG, DOSAGE(S)=1 INTERVAL= 1 DAY(S)
     Route: 065
  6. PRIMPERAN [Concomitant]
     Indication: PRODUCT USED FOR UNKNOWN INDICATION
     Dosage: 20 MG, TID
     Route: 065
  7. VALSARTAN [Concomitant]
     Indication: PRODUCT USED FOR UNKNOWN INDICATION
     Dosage: 320 MG, DOSAGE(S)=1 INTERVAL= 1 DAY(S)
     Route: 065
  8. HYDROCHLOROTHIAZIDE [Concomitant]
     Indication: PRODUCT USED FOR UNKNOWN INDICATION
     Dosage: 25 MG, DOSAGE(S)=1 INTERVAL= 1 DAY(S)
     Route: 065
  9. ACETYLSALICYLZUUR CARDIO [Concomitant]
     Indication: PRODUCT USED FOR UNKNOWN INDICATION
     Dosage: 80 MG, DOSAGE(S)=1 INTERVAL= 1 DAY(S)
     Route: 065
  10. AMLODIPINE [Concomitant]
     Indication: PRODUCT USED FOR UNKNOWN INDICATION
     Dosage: 5 MG,DOSAGE(S)=1 INTERVAL= 1 DAY(S)
     Route: 065
  11. ISORDIL [Concomitant]
     Indication: PRODUCT USED FOR UNKNOWN INDICATION
     Dosage: 5 MG, UNKNOWN
     Route: 065

REACTIONS (2)
  - Hypomagnesaemia [Recovering/Resolving]
  - Hypocalcaemia [Recovering/Resolving]
